FAERS Safety Report 24266041 (Version 1)
Quarter: 2024Q3

REPORT INFORMATION
  Report Type: Report from Study
  Country: US (occurrence: US)
  Receive Date: 20240830
  Receipt Date: 20240830
  Transmission Date: 20241017
  Serious: Yes (Hospitalization, Other)
  Sender: VALIDUS
  Company Number: US-VALIDUS PHARMACEUTICALS LLC-US-VDP-2024-019369

PATIENT

DRUGS (9)
  1. BUMEX [Suspect]
     Active Substance: BUMETANIDE
     Indication: Ascites
     Dosage: UNK
     Route: 065
     Dates: end: 202407
  2. BUMEX [Suspect]
     Active Substance: BUMETANIDE
     Indication: Oedema
     Dosage: UNK (RESTARTED)
     Route: 065
     Dates: start: 202408
  3. TYVASO [Suspect]
     Active Substance: TREPROSTINIL
     Indication: Pulmonary arterial hypertension
     Dosage: UNK
     Route: 055
     Dates: start: 202407, end: 202407
  4. TYVASO [Suspect]
     Active Substance: TREPROSTINIL
     Dosage: 36 MICROGRAM, QID
     Route: 055
     Dates: start: 202407, end: 202407
  5. TYVASO [Suspect]
     Active Substance: TREPROSTINIL
     Dosage: 6 MICROGRAM, QID (RESTART)
     Route: 055
     Dates: start: 2024, end: 20240805
  6. TYVASO [Suspect]
     Active Substance: TREPROSTINIL
     Dosage: 12 MICROGRAM, QID
     Route: 055
     Dates: start: 20240805
  7. SPIRONOLACTONE [Suspect]
     Active Substance: SPIRONOLACTONE
     Indication: Ascites
     Dosage: UNK
     Route: 065
     Dates: end: 202407
  8. SPIRONOLACTONE [Suspect]
     Active Substance: SPIRONOLACTONE
     Indication: Oedema
     Dosage: UNK (RESTARTED)
     Route: 065
     Dates: start: 202408
  9. OPSUMIT [Concomitant]
     Active Substance: MACITENTAN
     Indication: Product used for unknown indication
     Dosage: UNK
     Route: 065

REACTIONS (12)
  - Ascites [Unknown]
  - Syncope [Unknown]
  - Orthostatic hypotension [Unknown]
  - Fatigue [Unknown]
  - Dizziness [Recovered/Resolved]
  - Weight fluctuation [Unknown]
  - Dyspnoea exertional [Unknown]
  - Oedema [Unknown]
  - Therapy partial responder [Unknown]
  - Dyspnoea [Unknown]
  - Therapy interrupted [Unknown]
  - Product dose omission issue [Unknown]

NARRATIVE: CASE EVENT DATE: 20240101
